FAERS Safety Report 7288454-7 (Version None)
Quarter: 2011Q1

REPORT INFORMATION
  Report Type: 
  Country: None (occurrence: None)
  Receive Date: 20110211
  Receipt Date: 20110201
  Transmission Date: 20110831
  Serious: Yes (Life-Threatening, Hospitalization)
  Sender: FDA-Public Use
  Company Number: B0686934A

PATIENT
  Sex: Male
  Weight: 106 kg

DRUGS (13)
  1. ETRAVIRINE [Suspect]
     Indication: HIV INFECTION
     Dosage: 200MG TWICE PER DAY
     Route: 048
     Dates: start: 20090126
  2. MIRTAZAPINE [Concomitant]
     Route: 048
     Dates: start: 20061126
  3. ALFUZOSIN [Concomitant]
     Route: 048
     Dates: start: 20100101
  4. MARAVIROC [Suspect]
     Indication: HIV INFECTION
     Dosage: 150MG PER DAY
     Route: 048
     Dates: start: 20050928, end: 20060701
  5. ONDANSERTRON HCL [Concomitant]
     Route: 048
     Dates: start: 20060123
  6. CLONAZEPAM [Concomitant]
     Route: 048
     Dates: start: 20060220
  7. DARUNAVIR [Suspect]
     Indication: HIV INFECTION
     Dosage: 600MG TWICE PER DAY
     Route: 048
     Dates: start: 20060918
  8. RALTEGRAVIR [Suspect]
     Indication: HIV INFECTION
     Dosage: 400MG TWICE PER DAY
     Route: 048
     Dates: start: 20090126
  9. PREVACID [Concomitant]
     Route: 048
     Dates: start: 20060508
  10. VITAMIN D [Concomitant]
     Route: 048
     Dates: start: 20090101
  11. IBUPROFEN [Concomitant]
     Route: 048
     Dates: start: 20080211
  12. IMOVANE [Concomitant]
     Route: 048
     Dates: start: 20080929
  13. RITONAVIR [Suspect]
     Indication: HIV INFECTION
     Dosage: 100MG TWICE PER DAY
     Route: 048
     Dates: start: 20060918

REACTIONS (1)
  - ACUTE MYOCARDIAL INFARCTION [None]
